FAERS Safety Report 5729048-1 (Version None)
Quarter: 2008Q2

REPORT INFORMATION
  Report Type: 
  Country: None (occurrence: None)
  Receive Date: 20080430
  Receipt Date: 20080415
  Transmission Date: 20081010
  Serious: Yes (Life-Threatening, Hospitalization)
  Sender: FDA-Public Use
  Company Number: GXKR2008TW03665

PATIENT
  Age: 62 Year
  Sex: Male

DRUGS (3)
  1. LORAZEPAM [Suspect]
     Indication: SEDATION
     Dosage: 10 MG INTRAVENOUS
     Route: 042
  2. ANTIBIOTICS [Concomitant]
  3. MIDAZOLAM HCL [Concomitant]

REACTIONS (7)
  - ANION GAP INCREASED [None]
  - BRADYARRHYTHMIA [None]
  - CARDIAC PACEMAKER INSERTION [None]
  - HAEMODIALYSIS [None]
  - LACTIC ACIDOSIS [None]
  - METABOLIC ACIDOSIS [None]
  - THERAPEUTIC AGENT TOXICITY [None]
